FAERS Safety Report 25234570 (Version 1)
Quarter: 2025Q2

REPORT INFORMATION
  Report Type: Spontaneous
  Country: FR (occurrence: FR)
  Receive Date: 20250424
  Receipt Date: 20250424
  Transmission Date: 20250716
  Serious: Yes (Other)
  Sender: ROCHE
  Company Number: None

PATIENT
  Age: 68 Year
  Sex: Female
  Weight: 51 kg

DRUGS (3)
  1. TECENTRIQ [Suspect]
     Active Substance: ATEZOLIZUMAB
     Indication: Hepatocellular carcinoma
     Route: 042
     Dates: start: 2022
  2. MELATONIN [Suspect]
     Active Substance: MELATONIN
     Indication: Insomnia
     Route: 048
     Dates: start: 202502, end: 20250326
  3. PROLIA [Suspect]
     Active Substance: DENOSUMAB
     Indication: Osteoporosis
     Dosage: LAST INJECTION ON 25-FEB-2025
     Route: 058
     Dates: start: 2022

REACTIONS (1)
  - Hepatocellular injury [Recovering/Resolving]

NARRATIVE: CASE EVENT DATE: 20250317
